FAERS Safety Report 17247318 (Version 2)
Quarter: 2020Q1

REPORT INFORMATION
  Report Type: Spontaneous
  Country: IT (occurrence: IT)
  Receive Date: 20200108
  Receipt Date: 20200218
  Transmission Date: 20200409
  Serious: Yes (Other)
  Sender: FDA-Public Use
  Company Number: IT-GILEAD-2020-0445629

PATIENT
  Age: 76 Year
  Sex: Female

DRUGS (2)
  1. VIREAD [Suspect]
     Active Substance: TENOFOVIR DISOPROXIL FUMARATE
     Indication: CHRONIC HEPATITIS B
     Dosage: UNK
     Route: 065
  2. METFORMIN [Concomitant]
     Active Substance: METFORMIN HYDROCHLORIDE

REACTIONS (6)
  - Tibia fracture [Unknown]
  - Spinal fracture [Unknown]
  - Hypophosphataemia [Unknown]
  - Osteomalacia [Unknown]
  - Ankle fracture [Unknown]
  - Fibroblast growth factor 23 increased [Unknown]

NARRATIVE: CASE EVENT DATE: 2018
